FAERS Safety Report 5857290-8 (Version None)
Quarter: 2008Q3

REPORT INFORMATION
  Report Type: 
  Country: None (occurrence: None)
  Receive Date: 20080822
  Receipt Date: 20080813
  Transmission Date: 20090109
  Serious: Yes (Life-Threatening, Hospitalization)
  Sender: FDA-Public Use
  Company Number: GXKR2008US07673

PATIENT
  Age: 73 Year
  Sex: Female

DRUGS (13)
  1. CITALOPRAM HYDROBROMIDE [Suspect]
     Indication: DEPRESSION
  2. FLUCONAZOLE [Suspect]
     Dosage: 100 MG, QD
  3. ETOPOSIDE [Concomitant]
  4. CYTARABINE [Concomitant]
  5. IFOSFAMIDE [Concomitant]
  6. CLONAZEPAM [Concomitant]
  7. LEVOFLOXACIN [Concomitant]
  8. METOPROLOL TARTRATE [Concomitant]
  9. ACYCLOVIR [Concomitant]
  10. VANCOMYCIN [Concomitant]
  11. AMLODIPINE [Concomitant]
  12. VALSARTAN [Concomitant]
  13. PANTOPRAZOLE SODIUM [Concomitant]

REACTIONS (12)
  - BLOOD CALCIUM DECREASED [None]
  - BLOOD CHLORIDE DECREASED [None]
  - BLOOD GLUCOSE INCREASED [None]
  - BLOOD POTASSIUM DECREASED [None]
  - BLOOD SODIUM DECREASED [None]
  - DRUG INEFFECTIVE [None]
  - DRUG INTERACTION [None]
  - INTERNATIONAL NORMALISED RATIO INCREASED [None]
  - NEUTROPENIA [None]
  - PANCYTOPENIA [None]
  - PROTHROMBIN LEVEL INCREASED [None]
  - SEROTONIN SYNDROME [None]
